FAERS Safety Report 25278569 (Version 1)
Quarter: 2025Q2

REPORT INFORMATION
  Report Type: Spontaneous
  Country: CN (occurrence: CN)
  Receive Date: 20250507
  Receipt Date: 20250507
  Transmission Date: 20250716
  Serious: Yes (Life-Threatening)
  Sender: PFIZER
  Company Number: CN-PFIZER INC-PV202500052764

PATIENT
  Age: 76 Year
  Sex: Female
  Weight: 46 kg

DRUGS (6)
  1. ZYVOX [Suspect]
     Active Substance: LINEZOLID
     Indication: Abdominal infection
     Dosage: 600 MG, 2X/DAY
     Route: 041
     Dates: start: 20250406, end: 20250409
  2. ZYVOX [Suspect]
     Active Substance: LINEZOLID
     Indication: Septic shock
  3. CILASTATIN SODIUM\IMIPENEM [Concomitant]
     Active Substance: CILASTATIN SODIUM\IMIPENEM
     Indication: Abdominal infection
     Dosage: 0.5 G, 4X/DAY
     Route: 041
     Dates: start: 20250406, end: 20250422
  4. CILASTATIN SODIUM\IMIPENEM [Concomitant]
     Active Substance: CILASTATIN SODIUM\IMIPENEM
     Indication: Septic shock
  5. SODIUM CHLORIDE [Concomitant]
     Active Substance: SODIUM CHLORIDE
     Indication: Abdominal infection
     Dosage: 100 ML, 4X/DAY
     Route: 041
     Dates: start: 20250406, end: 20250422
  6. SODIUM CHLORIDE [Concomitant]
     Active Substance: SODIUM CHLORIDE
     Indication: Septic shock

REACTIONS (1)
  - Platelet count decreased [Recovered/Resolved]

NARRATIVE: CASE EVENT DATE: 20250408
